FAERS Safety Report 7312836-8 (Version None)
Quarter: 2011Q1

REPORT INFORMATION
  Report Type: 
  Country: None (occurrence: None)
  Receive Date: 20110224
  Receipt Date: 20110217
  Transmission Date: 20110831
  Serious: Yes (Other)
  Sender: FDA-Public Use
  Company Number: US-US-EMD SERONO, INC.-7037655

PATIENT
  Sex: Male

DRUGS (5)
  1. PREDNISONE [Concomitant]
     Indication: MULTIPLE SCLEROSIS
  2. PEPCID [Concomitant]
     Indication: PROPHYLAXIS
  3. REBIF [Suspect]
     Indication: MULTIPLE SCLEROSIS
     Route: 058
     Dates: start: 20110101, end: 20110101
  4. UNSPECIFIED ANTIBIOTIC [Concomitant]
     Indication: SINUSITIS
  5. REBIF [Suspect]
     Route: 058
     Dates: start: 20110130

REACTIONS (4)
  - OPTIC NEURITIS [None]
  - BLOOD PRESSURE INCREASED [None]
  - RENAL IMPAIRMENT [None]
  - THIRST [None]
